FAERS Safety Report 5629504-0 (Version None)
Quarter: 2008Q1

REPORT INFORMATION
  Report Type: 
  Country: None (occurrence: None)
  Receive Date: 20080214
  Receipt Date: 20080214
  Transmission Date: 20080703
  Serious: Yes (Hospitalization, Other)
  Sender: FDA-Public Use
  Company Number: None

PATIENT
  Sex: Male

DRUGS (1)
  1. LIPITOR [Suspect]
     Dates: start: 20070701

REACTIONS (4)
  - ASTHENIA [None]
  - BEDRIDDEN [None]
  - DYSSTASIA [None]
  - RHABDOMYOLYSIS [None]
